FAERS Safety Report 7749954-6 (Version None)
Quarter: 2011Q3

REPORT INFORMATION
  Report Type: 
  Country: None (occurrence: None)
  Receive Date: 20110914
  Receipt Date: 20110906
  Transmission Date: 20111222
  Serious: Yes (Hospitalization)
  Sender: FDA-Public Use
  Company Number: US-AMGEN-USASP2011045507

PATIENT
  Age: 55 Year
  Sex: Female

DRUGS (1)
  1. ENBREL [Suspect]
     Indication: RHEUMATOID ARTHRITIS
     Dosage: 50 MG, QWK
     Dates: start: 20031101, end: 20101207

REACTIONS (5)
  - HIP ARTHROPLASTY [None]
  - PAIN IN EXTREMITY [None]
  - CONTUSION [None]
  - FALL [None]
  - JOINT DISLOCATION [None]
